FAERS Safety Report 7330870-9 (Version None)
Quarter: 2011Q1

REPORT INFORMATION
  Report Type: 
  Country: None (occurrence: None)
  Receive Date: 20110304
  Receipt Date: 20110224
  Transmission Date: 20110831
  Serious: Yes (Other)
  Sender: FDA-Public Use
  Company Number: US-RB-021820-11

PATIENT
  Age: 71 Year
  Sex: Female

DRUGS (2)
  1. ALBUTEROL INHALANT [Concomitant]
     Route: 055
  2. DELSYM [Suspect]
     Indication: COUGH
     Route: 048

REACTIONS (8)
  - DRUG INEFFECTIVE [None]
  - NAUSEA [None]
  - FEELING COLD [None]
  - ASTHENIA [None]
  - DIZZINESS [None]
  - MALAISE [None]
  - FEELING ABNORMAL [None]
  - HYPERTENSION [None]
